FAERS Safety Report 10214953 (Version 2)
Quarter: 2014Q2

REPORT INFORMATION
  Report Type: Spontaneous
  Country: US (occurrence: US)
  Receive Date: 20140603
  Receipt Date: 20140603
  Transmission Date: 20141212
  Serious: Yes (Other)
  Sender: FDA-Public Use
  Company Number: US-PFIZER INC-2014123901

PATIENT
  Sex: Female

DRUGS (4)
  1. IBUPROFEN [Suspect]
     Indication: BACK PAIN
     Dosage: 800 MG, 3X/DAY
  2. SKELAXIN [Suspect]
     Indication: BACK PAIN
     Dosage: 800 MG, 3X/DAY
  3. BENADRYL [Suspect]
     Indication: PRURITUS
     Dosage: 2 DF (2 BENADRYL), UNK
     Route: 048
  4. BENADRYL [Suspect]
     Indication: URTICARIA

REACTIONS (4)
  - Urticaria [Unknown]
  - Pruritus [Unknown]
  - Peripheral swelling [Unknown]
  - Drug ineffective [Unknown]
